FAERS Safety Report 6134315-6 (Version None)
Quarter: 2009Q1

REPORT INFORMATION
  Report Type: 
  Country: None (occurrence: None)
  Receive Date: 20090325
  Receipt Date: 20090312
  Transmission Date: 20090719
  Serious: No
  Sender: FDA-Public Use
  Company Number: 2009-192539-NL

PATIENT
  Age: 56 Year
  Sex: Female

DRUGS (1)
  1. MIRTAZAPINE [Suspect]
     Indication: DEPRESSION
     Dosage: 15 MG
     Dates: start: 20000101, end: 20090304

REACTIONS (1)
  - OSTEOLYSIS [None]
